FAERS Safety Report 21079399 (Version 1)
Quarter: 2022Q3

REPORT INFORMATION
  Report Type: Spontaneous
  Country: NO (occurrence: NO)
  Receive Date: 20220714
  Receipt Date: 20220714
  Transmission Date: 20221026
  Serious: Yes (Other)
  Sender: FDA-Public Use
  Company Number: NO-Accord-260227

PATIENT
  Age: 47 Year
  Sex: Female

DRUGS (20)
  1. CARBOPLATIN [Suspect]
     Active Substance: CARBOPLATIN
     Indication: Ovarian cancer stage IV
     Dates: start: 20190501, end: 20210801
  2. DOCETAXEL [Suspect]
     Active Substance: DOCETAXEL
     Indication: Ovarian cancer stage IV
     Dates: start: 20190501, end: 20210801
  3. TAXOL [Suspect]
     Active Substance: PACLITAXEL
     Indication: Ovarian cancer stage IV
     Dates: start: 20190501, end: 20210801
  4. AVASTIN [Suspect]
     Active Substance: BEVACIZUMAB
     Indication: Ovarian cancer stage IV
     Dates: start: 20190501, end: 20210801
  5. DOXORUBICIN HYDROCHLORIDE [Suspect]
     Active Substance: DOXORUBICIN HYDROCHLORIDE
     Indication: Ovarian cancer stage IV
     Dates: start: 20190501, end: 20210801
  6. NALOXONE HYDROCHLORIDE\OXYCODONE HYDROCHLORIDE [Suspect]
     Active Substance: NALOXONE HYDROCHLORIDE\OXYCODONE HYDROCHLORIDE
     Indication: Pain
     Dates: start: 20190501, end: 20210801
  7. OXYCODONE HYDROCHLORIDE [Suspect]
     Active Substance: OXYCODONE HYDROCHLORIDE
     Indication: Pain
     Dates: start: 20190501, end: 20210801
  8. METOCLOPRAMIDE HYDROCHLORIDE [Concomitant]
     Active Substance: METOCLOPRAMIDE HYDROCHLORIDE
  9. DEXAMETHASONE [Concomitant]
     Active Substance: DEXAMETHASONE
  10. NABIXIMOLS [Concomitant]
     Active Substance: NABIXIMOLS
  11. ENOXAPARIN [Concomitant]
     Active Substance: ENOXAPARIN
  12. LYNPARZA [Concomitant]
     Active Substance: OLAPARIB
  13. CIPROFLOXAN [Concomitant]
  14. Flagy [Concomitant]
  15. PYRIDOXINE [Concomitant]
     Active Substance: PYRIDOXINE
  16. PANTOPRAZOLE SODIUM [Concomitant]
     Active Substance: PANTOPRAZOLE SODIUM
  17. ESOMEPRAZOLE [Concomitant]
     Active Substance: ESOMEPRAZOLE
  18. Pensa [Concomitant]
  19. MOVICOL [Concomitant]
     Active Substance: POLYETHYLENE GLYCOL 3350\POTASSIUM CHLORIDE\SODIUM BICARBONATE\SODIUM CHLORIDE
  20. BEVACIZUMAB [Suspect]
     Active Substance: BEVACIZUMAB
     Indication: Ovarian cancer stage IV
     Dates: start: 20190426

REACTIONS (18)
  - Abdominal pain [Unknown]
  - Back pain [Unknown]
  - Decreased appetite [Unknown]
  - Deafness [Unknown]
  - Bowel movement irregularity [Unknown]
  - Dyspnoea [Unknown]
  - Hyperhidrosis [Unknown]
  - Hot flush [Unknown]
  - Sleep disorder [Unknown]
  - Headache [Unknown]
  - Pruritus [Unknown]
  - Rash [Unknown]
  - Contusion [Unknown]
  - Neuropathy peripheral [Unknown]
  - Metastases to liver [Unknown]
  - Thrombosis [Unknown]
  - Cholecystitis [Unknown]
  - Malignant neoplasm progression [Unknown]

NARRATIVE: CASE EVENT DATE: 20190601
